FAERS Safety Report 14688874 (Version 2)
Quarter: 2018Q1

REPORT INFORMATION
  Report Type: Spontaneous
  Country: JP (occurrence: JP)
  Receive Date: 20180328
  Receipt Date: 20180328
  Transmission Date: 20180509
  Serious: Yes (Death, Life-Threatening, Other)
  Sender: FDA-Public Use
  Company Number: JP-PFIZER INC-2018052227

PATIENT
  Age: 50 Year
  Sex: Female
  Weight: 56 kg

DRUGS (6)
  1. FASLODEX [Suspect]
     Active Substance: FULVESTRANT
     Indication: BREAST CANCER
     Dosage: 500 MG, 1X/DAY
     Route: 030
     Dates: start: 20180119
  2. DOGMATYL [Concomitant]
     Active Substance: SULPIRIDE
     Indication: DEPRESSION
     Dosage: 50 MG, 3X/DAY
     Route: 048
     Dates: start: 20171228
  3. IBRANCE [Suspect]
     Active Substance: PALBOCICLIB
     Indication: BREAST CANCER
     Dosage: 125 MG, 1X/DAY
     Route: 048
     Dates: start: 20180119
  4. SOLANAX [Concomitant]
     Active Substance: ALPRAZOLAM
     Indication: DEPRESSION
     Dosage: 0.4 MG, 2X/DAY
     Route: 048
     Dates: start: 20171228
  5. BELSOMRA [Concomitant]
     Active Substance: SUVOREXANT
     Indication: DEPRESSION
     Dosage: 15 MG, 1X/DAY
     Route: 048
     Dates: start: 20180112
  6. REFLEX [Concomitant]
     Active Substance: MIRTAZAPINE
     Indication: DEPRESSION
     Dosage: 45 MG, 1X/DAY
     Route: 048
     Dates: start: 20180112

REACTIONS (6)
  - Haemorrhage [Fatal]
  - Condition aggravated [Fatal]
  - Neutrophil count decreased [Fatal]
  - Haemoglobin decreased [Unknown]
  - Leukopenia [Fatal]
  - Cardiac failure [Fatal]

NARRATIVE: CASE EVENT DATE: 20180202
